FAERS Safety Report 10274433 (Version 1)
Quarter: 2014Q3

REPORT INFORMATION
  Report Type: Spontaneous
  Country: BR (occurrence: BR)
  Receive Date: 20140702
  Receipt Date: 20140702
  Transmission Date: 20150326
  Serious: Yes (Hospitalization, Other)
  Sender: FDA-Public Use
  Company Number: BR-ASTRAZENECA-2014SE46546

PATIENT
  Age: 44 Year
  Sex: Male
  Weight: 98 kg

DRUGS (3)
  1. ATACAND HCT [Suspect]
     Active Substance: CANDESARTAN CILEXETIL\HYDROCHLOROTHIAZIDE
     Indication: HYPERTENSION
     Dosage: HALF OF 16/12.5 MG TABLET, DAILY
     Route: 048
     Dates: end: 201406
  2. SELOZOK [Suspect]
     Active Substance: METOPROLOL SUCCINATE
     Indication: ARRHYTHMIA
     Route: 048
     Dates: start: 201406
  3. BRILINTA [Suspect]
     Active Substance: TICAGRELOR
     Indication: BUNDLE BRANCH BLOCK
     Route: 048
     Dates: start: 201406

REACTIONS (7)
  - Arrhythmia [Recovered/Resolved]
  - Chest discomfort [Not Recovered/Not Resolved]
  - Dizziness [Not Recovered/Not Resolved]
  - Dyspnoea [Not Recovered/Not Resolved]
  - Bundle branch block [Recovering/Resolving]
  - Heart rate decreased [Not Recovered/Not Resolved]
  - Off label use [Not Recovered/Not Resolved]

NARRATIVE: CASE EVENT DATE: 201406
